FAERS Safety Report 23089228 (Version 1)
Quarter: 2023Q4

REPORT INFORMATION
  Report Type: Spontaneous
  Country: CN (occurrence: CN)
  Receive Date: 20231020
  Receipt Date: 20231020
  Transmission Date: 20240110
  Serious: Yes (Other)
  Sender: FDA-Public Use
  Company Number: CN-INNOVENT BIOLOGICS-INN2023005024

PATIENT

DRUGS (1)
  1. PEMAZYRE [Suspect]
     Active Substance: PEMIGATINIB
     Indication: Bile duct cancer
     Dosage: 13.5 MG
     Route: 065
     Dates: start: 202304

REACTIONS (2)
  - Renal impairment [Unknown]
  - Ascites [Unknown]

NARRATIVE: CASE EVENT DATE: 20230101
